FAERS Safety Report 20043560 (Version 1)
Quarter: 2021Q4

REPORT INFORMATION
  Report Type: Spontaneous
  Country: US (occurrence: None)
  Receive Date: 20211108
  Receipt Date: 20211108
  Transmission Date: 20220303
  Serious: Yes (Hospitalization)
  Sender: FDA-Public Use
  Company Number: US-ROCHE-2946822

PATIENT
  Age: 76 Year
  Sex: Male
  Weight: 71.8 kg

DRUGS (3)
  1. GAZYVA [Suspect]
     Active Substance: OBINUTUZUMAB
     Indication: Follicular lymphoma
     Dosage: NO
     Route: 042
     Dates: start: 20210722
  2. GAZYVA [Suspect]
     Active Substance: OBINUTUZUMAB
     Dosage: ONGOING NO
     Route: 042
     Dates: start: 201904
  3. BENDAMUSTINE [Concomitant]
     Active Substance: BENDAMUSTINE
     Dosage: WITH 20% DOSE REDUCTION OF OVERALL DOSE
     Route: 042
     Dates: start: 20210722

REACTIONS (2)
  - Cardiac failure congestive [Not Recovered/Not Resolved]
  - Ventricular tachycardia [Not Recovered/Not Resolved]

NARRATIVE: CASE EVENT DATE: 20211027
